FAERS Safety Report 5002200-9 (Version None)
Quarter: 2006Q2

REPORT INFORMATION
  Report Type: 
  Country: None (occurrence: None)
  Receive Date: 20060510
  Receipt Date: 20060424
  Transmission Date: 20061013
  Serious: Yes (Other)
  Sender: FDA-Public Use
  Company Number: TRP_0758_2006

PATIENT
  Age: 57 Year
  Sex: Female
  Weight: 87.0906 kg

DRUGS (10)
  1. RIBASPHERE [Suspect]
     Indication: HEPATITIS C
     Dosage: DF PO
     Route: 048
     Dates: start: 20050306, end: 20050605
  2. RIBASPHERE [Suspect]
     Indication: HEPATITIS C
     Dosage: DF PO
     Route: 048
     Dates: start: 20050904
  3. PEG-INTRON [Suspect]
     Indication: HEPATITIS C
     Dosage: 120 MCG SC
     Route: 058
     Dates: start: 20050306, end: 20050605
  4. PEG-INTRON [Suspect]
     Indication: HEPATITIS C
     Dosage: DF SC
     Route: 058
     Dates: start: 20050904
  5. ACETAMINOPHEN AND CODEINE PHOSPHATE [Concomitant]
  6. INSULIN INSULATARD NPH NORDISK [Concomitant]
  7. NASONEX [Concomitant]
  8. ACCURETIC [Concomitant]
  9. TAZTIA [Concomitant]
  10. EPOGEN [Concomitant]

REACTIONS (7)
  - ALOPECIA [None]
  - ANAEMIA [None]
  - DEPRESSION [None]
  - HEADACHE [None]
  - MEMORY IMPAIRMENT [None]
  - RASH [None]
  - WEIGHT DECREASED [None]
